FAERS Safety Report 25837066 (Version 2)
Quarter: 2025Q4

REPORT INFORMATION
  Report Type: Spontaneous
  Country: US (occurrence: US)
  Receive Date: 20250923
  Receipt Date: 20251013
  Transmission Date: 20260118
  Serious: No
  Sender: CALLIDITAS THERAPEUTICS AB
  Company Number: US-Calliditas-2025CAL02895

PATIENT
  Age: 66 Year
  Sex: Female

DRUGS (16)
  1. TARPEYO [Suspect]
     Active Substance: BUDESONIDE
     Indication: IgA nephropathy
     Route: 048
     Dates: start: 20250730
  2. ALLOPURINOL [Concomitant]
     Active Substance: ALLOPURINOL
  3. FAMOTIDINE [Concomitant]
     Active Substance: FAMOTIDINE
  4. FISH OIL [Concomitant]
     Active Substance: FISH OIL
  5. FUROSEMIDE [Concomitant]
     Active Substance: FUROSEMIDE
  6. HYDRALAZINE [Concomitant]
     Active Substance: HYDRALAZINE HYDROCHLORIDE
  7. JARDIANCE [Concomitant]
     Active Substance: EMPAGLIFLOZIN
  8. LOSARTAN [Concomitant]
     Active Substance: LOSARTAN
  9. METOPROLOL [Concomitant]
     Active Substance: METOPROLOL
  10. MINERALS\VITAMINS [Concomitant]
     Active Substance: MINERALS\VITAMINS
  11. NIFEDIPINE [Concomitant]
     Active Substance: NIFEDIPINE
  12. NORETHINDRONE [Concomitant]
     Active Substance: NORETHINDRONE
  13. PANTOPRAZOLE [Concomitant]
     Active Substance: PANTOPRAZOLE
  14. TRAMADOL [Concomitant]
     Active Substance: TRAMADOL
  15. GOLDENSEAL ROOT [HYDRASTIS CANADENSIS ROOT WITH RHIZOME] [Concomitant]
  16. VITAMIN D3 [Concomitant]
     Active Substance: CHOLECALCIFEROL

REACTIONS (3)
  - Peripheral swelling [Not Recovered/Not Resolved]
  - Joint swelling [Not Recovered/Not Resolved]
  - Product dose omission issue [Recovered/Resolved]

NARRATIVE: CASE EVENT DATE: 20250928
